FAERS Safety Report 6041999-X (Version None)
Quarter: 2009Q1

REPORT INFORMATION
  Report Type: 
  Country: None (occurrence: None)
  Receive Date: 20090116
  Receipt Date: 20090112
  Transmission Date: 20090719
  Serious: Yes (Other)
  Sender: FDA-Public Use
  Company Number: US-MERCK-0812USA03346

PATIENT
  Age: 4 Year
  Sex: Male
  Weight: 16 kg

DRUGS (7)
  1. SINGULAIR [Suspect]
     Indication: HYPERSENSITIVITY
     Route: 048
     Dates: start: 20080505, end: 20080525
  2. ALLEGRA [Concomitant]
     Indication: HYPERSENSITIVITY
     Route: 065
     Dates: end: 20080505
  3. FLOVENT [Concomitant]
     Route: 065
     Dates: end: 20080505
  4. NASONEX [Concomitant]
     Route: 065
     Dates: end: 20080505
  5. ACETAMINOPHEN AND IBUPROFEN [Concomitant]
     Route: 065
     Dates: start: 20070101
  6. M-M-R II [Concomitant]
     Indication: PROPHYLAXIS
     Route: 058
     Dates: start: 20080505
  7. VARIVAX [Concomitant]
     Indication: PROPHYLAXIS
     Route: 058
     Dates: start: 20080505

REACTIONS (7)
  - ABNORMAL BEHAVIOUR [None]
  - ABNORMAL DREAMS [None]
  - DEPRESSION [None]
  - FEAR [None]
  - HALLUCINATION [None]
  - INTENTIONAL SELF-INJURY [None]
  - MOOD SWINGS [None]
